FAERS Safety Report 5451529-9 (Version None)
Quarter: 2007Q3

REPORT INFORMATION
  Report Type: 
  Country: None (occurrence: None)
  Receive Date: 20070913
  Receipt Date: 20070904
  Transmission Date: 20080115
  Serious: Yes (Life-Threatening, Other)
  Sender: FDA-Public Use
  Company Number: HQWYE782723AUG07

PATIENT
  Age: 35 Year
  Sex: Female
  Weight: 58.5 kg

DRUGS (1)
  1. TRIQUILAR-21 [Suspect]
     Indication: MENORRHAGIA
     Dosage: UNKNOWN
     Route: 048
     Dates: start: 20060501, end: 20070801

REACTIONS (2)
  - LOSS OF CONSCIOUSNESS [None]
  - THROMBOSIS [None]
